FAERS Safety Report 11389605 (Version 1)
Quarter: 2015Q3

REPORT INFORMATION
  Report Type: Spontaneous
  Country: US (occurrence: US)
  Receive Date: 20150817
  Receipt Date: 20150817
  Transmission Date: 20151125
  Serious: No
  Sender: FDA-Public Use
  Company Number: US-TAKEDA-2015TUS004370

PATIENT
  Sex: Female
  Weight: 60.77 kg

DRUGS (7)
  1. ROZEREM [Suspect]
     Active Substance: RAMELTEON
     Dosage: 1 TABLET, EVERY NIGHT
     Route: 048
     Dates: start: 201503, end: 2015
  2. HEART BURN MEDICINE [Concomitant]
     Dosage: UNK
     Route: 048
  3. ROZEREM [Suspect]
     Active Substance: RAMELTEON
     Indication: INSOMNIA
     Dosage: 1 TABLET, EVERY NIGHT
     Route: 048
     Dates: start: 20150304, end: 20150309
  4. FISH OIL [Concomitant]
     Active Substance: FISH OIL
     Dosage: UNK
     Route: 048
  5. MULTIVITAMIN                       /00097801/ [Concomitant]
     Active Substance: VITAMINS
     Dosage: UNK
     Route: 048
  6. VITAMIN B12 [Concomitant]
     Active Substance: CYANOCOBALAMIN
     Dosage: UNK
     Route: 048
  7. HEADACHE PILLS [Concomitant]
     Dosage: UNK
     Route: 048

REACTIONS (2)
  - Memory impairment [Not Recovered/Not Resolved]
  - Drug ineffective [Not Recovered/Not Resolved]
